FAERS Safety Report 9812974 (Version 1)
Quarter: 2014Q1

REPORT INFORMATION
  Report Type: Spontaneous
  Country: FR (occurrence: None)
  Receive Date: 20140108
  Receipt Date: 20140108
  Transmission Date: 20141002
  Serious: Yes (Other)
  Sender: FDA-Public Use
  Company Number: 2013FR00947

PATIENT
  Sex: 0

DRUGS (2)
  1. GEMCITABINE [Suspect]
     Indication: BLADDER CANCER
  2. CISPLATIN [Concomitant]

REACTIONS (1)
  - Performance status decreased [None]
